FAERS Safety Report 9803240 (Version 1)
Quarter: 2014Q1

REPORT INFORMATION
  Report Type: Spontaneous
  Country: US (occurrence: None)
  Receive Date: 20140107
  Receipt Date: 20140107
  Transmission Date: 20141002
  Serious: Yes (Other)
  Sender: FDA-Public Use
  Company Number: None

PATIENT
  Age: 25 Year
  Sex: Female

DRUGS (2)
  1. ADDERALL XR [Suspect]
     Route: 048
     Dates: start: 2011
  2. ADDERALL XR [Suspect]
     Route: 048
     Dates: start: 2011

REACTIONS (3)
  - Product substitution issue [None]
  - Product substitution issue [None]
  - Treatment failure [None]
